FAERS Safety Report 9459976 (Version 3)
Quarter: 2013Q4

REPORT INFORMATION
  Report Type: Report from Study
  Country: NZ (occurrence: NZ)
  Receive Date: 20130815
  Receipt Date: 20131009
  Transmission Date: 20140711
  Serious: Yes (Other)
  Sender: FDA-Public Use
  Company Number: PHHY2013NZ074854

PATIENT
  Age: 29 Year
  Sex: Male
  Weight: 75 kg

DRUGS (7)
  1. CLOZARIL [Suspect]
     Indication: SCHIZOPHRENIA
     Dosage: 500 MG, DAILY
     Route: 048
     Dates: start: 20121106, end: 20130715
  2. CLOZARIL [Suspect]
     Indication: PSYCHOTIC DISORDER
  3. RISPERIDONE [Concomitant]
     Indication: PSYCHOTIC DISORDER
     Dosage: 1 TO 6 MG
     Route: 048
     Dates: start: 20111205, end: 20120409
  4. AMISULPRIDE [Concomitant]
     Indication: PSYCHOTIC DISORDER
     Dosage: 100 TO 800 MG
     Route: 048
     Dates: start: 20120407, end: 20120726
  5. OLANZAPINE [Concomitant]
     Indication: PSYCHOTIC DISORDER
     Dosage: 20 MG, (5 TO 20 MG)
     Route: 048
     Dates: start: 20120726, end: 20121102
  6. CITALOPRAM [Concomitant]
     Indication: DEPRESSION
     Dosage: 10 MG, UNK
     Route: 048
     Dates: start: 20120214, end: 20121003
  7. ARIPIPRAZOLE [Concomitant]
     Dosage: 5 MG, DAILY
     Route: 048
     Dates: start: 201305, end: 20130731

REACTIONS (4)
  - Left ventricular hypertrophy [Unknown]
  - Electrocardiogram T wave abnormal [Recovered/Resolved]
  - Electrocardiogram QT prolonged [Recovered/Resolved]
  - Heart rate increased [Recovered/Resolved]
